FAERS Safety Report 8374207-5 (Version None)
Quarter: 2012Q2

REPORT INFORMATION
  Report Type: 
  Country: None (occurrence: None)
  Receive Date: 20120521
  Receipt Date: 20120509
  Transmission Date: 20120825
  Serious: Yes (Hospitalization)
  Sender: FDA-Public Use
  Company Number: JP-MERCK-1205USA02248

PATIENT
  Age: 38 Year
  Sex: Female
  Weight: 98 kg

DRUGS (9)
  1. DECADRON [Suspect]
     Indication: DIABETES MELLITUS MANAGEMENT
     Route: 065
  2. DECADRON [Suspect]
     Route: 065
  3. GLIMEPIRIDE [Concomitant]
     Route: 048
  4. DECADRON [Suspect]
     Route: 065
  5. FUROSEMIDE [Concomitant]
     Route: 048
  6. DECADRON [Suspect]
     Indication: 21-HYDROXYLASE DEFICIENCY
     Route: 065
  7. DECADRON [Suspect]
     Route: 065
  8. DECADRON [Suspect]
     Route: 065
  9. SPIRONOLACTONE [Concomitant]
     Route: 048

REACTIONS (3)
  - OBESITY [None]
  - INAPPROPRIATE SCHEDULE OF DRUG ADMINISTRATION [None]
  - DIABETES MELLITUS [None]
